FAERS Safety Report 5706601-2 (Version None)
Quarter: 2008Q2

REPORT INFORMATION
  Report Type: 
  Country: None (occurrence: None)
  Receive Date: 20080415
  Receipt Date: 20080402
  Transmission Date: 20081010
  Serious: Yes (Hospitalization)
  Sender: FDA-Public Use
  Company Number: US-ELI_LILLY_AND_COMPANY-US200804000587

PATIENT
  Sex: Female

DRUGS (3)
  1. CYMBALTA [Suspect]
     Indication: MENOPAUSE
     Dosage: 60 MG, UNK
     Route: 048
     Dates: start: 20071001, end: 20080101
  2. BOTOX [Concomitant]
     Indication: MIGRAINE
  3. VICODIN [Concomitant]

REACTIONS (15)
  - CLOSTRIDIAL INFECTION [None]
  - CYST [None]
  - ERYTHEMA [None]
  - INFECTION [None]
  - OBSESSIVE-COMPULSIVE DISORDER [None]
  - PAIN [None]
  - POLLAKIURIA [None]
  - POLYDIPSIA [None]
  - SJOGREN'S SYNDROME [None]
  - STAPHYLOCOCCAL INFECTION [None]
  - TOXIC SHOCK SYNDROME [None]
  - URETHRAL DISORDER [None]
  - VAGINAL INFECTION [None]
  - VAGINAL LACERATION [None]
  - VULVOVAGINAL DRYNESS [None]
